FAERS Safety Report 17881143 (Version 14)
Quarter: 2022Q1

REPORT INFORMATION
  Report Type: Report from Study
  Country: PA (occurrence: PA)
  Receive Date: 20200610
  Receipt Date: 20220205
  Transmission Date: 20220423
  Serious: Yes (Other)
  Sender: FDA-Public Use
  Company Number: PHHY2018PA067184

PATIENT
  Age: 19 Year
  Sex: Male

DRUGS (18)
  1. SECUKINUMAB [Suspect]
     Active Substance: SECUKINUMAB
     Indication: Psoriasis
     Dosage: UNK
     Route: 058
  2. SECUKINUMAB [Suspect]
     Active Substance: SECUKINUMAB
     Dosage: 150 MG, QMO
     Route: 058
  3. SECUKINUMAB [Suspect]
     Active Substance: SECUKINUMAB
     Dosage: 150 MG
     Route: 058
  4. SECUKINUMAB [Suspect]
     Active Substance: SECUKINUMAB
     Dosage: 150 MG
     Route: 058
  5. SECUKINUMAB [Suspect]
     Active Substance: SECUKINUMAB
     Dosage: 150 MG, QMO
     Route: 058
  6. SECUKINUMAB [Suspect]
     Active Substance: SECUKINUMAB
     Dosage: 150 MG
     Route: 058
  7. SECUKINUMAB [Suspect]
     Active Substance: SECUKINUMAB
     Dosage: 150 MG
     Route: 058
  8. SECUKINUMAB [Suspect]
     Active Substance: SECUKINUMAB
     Dosage: 2 DOSAGE FORM, QMO
     Route: 058
  9. SECUKINUMAB [Suspect]
     Active Substance: SECUKINUMAB
     Dosage: 150 MG, QMO
     Route: 058
  10. SECUKINUMAB [Suspect]
     Active Substance: SECUKINUMAB
     Dosage: 300 MG, QMO
     Route: 058
     Dates: start: 201807
  11. SECUKINUMAB [Suspect]
     Active Substance: SECUKINUMAB
     Dosage: 300 MG, QMO
     Route: 058
     Dates: start: 20180725
  12. SECUKINUMAB [Suspect]
     Active Substance: SECUKINUMAB
     Dosage: 300 MG, QMO
     Route: 058
     Dates: start: 20181023
  13. SECUKINUMAB [Suspect]
     Active Substance: SECUKINUMAB
     Dosage: 300 MG, QMO
     Route: 058
  14. SECUKINUMAB [Suspect]
     Active Substance: SECUKINUMAB
     Dosage: 300 MG, QMO
     Route: 058
     Dates: start: 20181122
  15. SECUKINUMAB [Suspect]
     Active Substance: SECUKINUMAB
     Dosage: 300 MG, QMO
     Route: 058
     Dates: start: 20190328
  16. SECUKINUMAB [Suspect]
     Active Substance: SECUKINUMAB
     Dosage: 300 MG, QMO
     Route: 058
     Dates: start: 20201112
  17. SECUKINUMAB [Suspect]
     Active Substance: SECUKINUMAB
     Dosage: 300 MG, QMO
     Route: 058
  18. GLICOLIC [Concomitant]
     Indication: Product used for unknown indication
     Dosage: 150 MG
     Route: 061

REACTIONS (41)
  - Limb injury [Recovering/Resolving]
  - Syncope [Unknown]
  - Weight decreased [Recovered/Resolved]
  - Sneezing [Unknown]
  - Productive cough [Unknown]
  - Dermatitis [Recovered/Resolved]
  - Acne [Recovering/Resolving]
  - Dermatitis [Not Recovered/Not Resolved]
  - Headache [Recovered/Resolved]
  - Pain in extremity [Unknown]
  - Melanocytic naevus [Not Recovered/Not Resolved]
  - Nail discolouration [Recovering/Resolving]
  - Onychalgia [Recovering/Resolving]
  - Decreased immune responsiveness [Unknown]
  - Nasopharyngitis [Recovering/Resolving]
  - Infection [Unknown]
  - Erythema [Recovering/Resolving]
  - Psoriasis [Recovering/Resolving]
  - Skin exfoliation [Recovering/Resolving]
  - Skin plaque [Recovering/Resolving]
  - Injection site haemorrhage [Recovered/Resolved]
  - Skin lesion [Recovered/Resolved]
  - Swelling face [Unknown]
  - Eye disorder [Unknown]
  - Thirst [Unknown]
  - Taste disorder [Unknown]
  - Abdominal discomfort [Unknown]
  - Migraine [Unknown]
  - Pallor [Not Recovered/Not Resolved]
  - Skin papilloma [Recovering/Resolving]
  - Asthenia [Not Recovered/Not Resolved]
  - Contusion [Unknown]
  - Seborrhoeic dermatitis [Unknown]
  - Nasal congestion [Unknown]
  - Insomnia [Unknown]
  - Influenza [Unknown]
  - Skin discolouration [Unknown]
  - Pain [Unknown]
  - Arthralgia [Unknown]
  - Rhinorrhoea [Unknown]
  - Drug ineffective [Unknown]

NARRATIVE: CASE EVENT DATE: 20190727
